FAERS Safety Report 6272515-5 (Version None)
Quarter: 2009Q3

REPORT INFORMATION
  Report Type: 
  Country: None (occurrence: None)
  Receive Date: 20090717
  Receipt Date: 20090707
  Transmission Date: 20100115
  Serious: Yes (Death)
  Sender: FDA-Public Use
  Company Number: GB-PFIZER INC-2009185265

PATIENT
  Age: 35 Year

DRUGS (3)
  1. LYRICA [Suspect]
     Indication: SLEEP DISORDER
     Dosage: 900 MG, UNK
     Route: 048
     Dates: start: 20051201
  2. CITALOPRAM [Concomitant]
     Indication: DEPRESSION
     Dosage: 20 MG, 2X/DAY
     Route: 048
     Dates: start: 20080918
  3. CLONAZEPAM [Concomitant]
     Indication: SLEEP DISORDER
     Dosage: 500 MG, 3X/DAY
     Dates: start: 20060516

REACTIONS (4)
  - APNOEA [None]
  - DRUG LEVEL CHANGED [None]
  - DRUG LEVEL INCREASED [None]
  - SOMNOLENCE [None]
